FAERS Safety Report 4806138-9 (Version None)
Quarter: 2005Q4

REPORT INFORMATION
  Report Type: 
  Country: None (occurrence: None)
  Receive Date: 20051021
  Receipt Date: 20051013
  Transmission Date: 20060501
  Serious: Yes (Life-Threatening, Hospitalization)
  Sender: FDA-Public Use
  Company Number: FR-SANOFI-SYNTHELABO-A02200502700

PATIENT
  Age: 44 Year
  Sex: Female
  Weight: 67 kg

DRUGS (6)
  1. ELOXATIN [Suspect]
     Indication: COLON CANCER
     Route: 042
     Dates: start: 20050907, end: 20050907
  2. ELVORINE [Suspect]
     Indication: COLON CANCER
     Route: 042
     Dates: start: 20050907, end: 20050907
  3. AVASTIN [Suspect]
     Indication: COLON CANCER
     Route: 042
     Dates: start: 20050907, end: 20050907
  4. FLUOROURACILE TEVA [Suspect]
     Indication: COLON CANCER
     Route: 042
     Dates: start: 20050907, end: 20050907
  5. FLUOROURACILE TEVA [Suspect]
     Route: 042
     Dates: start: 20050907, end: 20050907
  6. ONDANSETRON [Suspect]
     Indication: DRUG USE FOR UNKNOWN INDICATION
     Route: 048
     Dates: start: 20050907, end: 20050907

REACTIONS (2)
  - CARDIAC ARREST [None]
  - SEPTIC SHOCK [None]
